FAERS Safety Report 9417831 (Version 1)
Quarter: 2013Q3

REPORT INFORMATION
  Report Type: Spontaneous
  Country: US (occurrence: US)
  Receive Date: 20130724
  Receipt Date: 20130724
  Transmission Date: 20140515
  Serious: Yes (Other)
  Sender: FDA-Public Use
  Company Number: US-ASTRAZENECA-2013SE53467

PATIENT
  Age: 40 Year
  Sex: Male

DRUGS (2)
  1. CRESTOR [Suspect]
     Indication: HIGH DENSITY LIPOPROTEIN ABNORMAL
     Route: 048
  2. MULTIVITAMIN [Concomitant]
     Indication: VITAMIN SUPPLEMENTATION

REACTIONS (1)
  - Pulmonary fibrosis [Not Recovered/Not Resolved]
